FAERS Safety Report 18790701 (Version 1)
Quarter: 2021Q1

REPORT INFORMATION
  Report Type: Spontaneous
  Country: JP (occurrence: JP)
  Receive Date: 20210126
  Receipt Date: 20210126
  Transmission Date: 20210419
  Serious: Yes (Other)
  Sender: FDA-Public Use
  Company Number: JP-PFIZER INC-2021038522

PATIENT
  Sex: Male

DRUGS (5)
  1. GASTER [Concomitant]
     Active Substance: FAMOTIDINE
     Dosage: UNK
  2. EPADEL?S [Concomitant]
     Active Substance: ICOSAPENT ETHYL
     Dosage: UNK
  3. CELECOX [Suspect]
     Active Substance: CELECOXIB
     Dosage: UNK
  4. LIVALO [Concomitant]
     Active Substance: PITAVASTATIN CALCIUM
     Dosage: UNK
  5. BAYASPIRIN [Concomitant]
     Active Substance: ASPIRIN
     Dosage: UNK
     Route: 048

REACTIONS (5)
  - Arthralgia [Unknown]
  - Pharyngitis [Unknown]
  - Tonsillar hypertrophy [Unknown]
  - Tonsillar disorder [Unknown]
  - Pyrexia [Unknown]
